FAERS Safety Report 8887711 (Version 4)
Quarter: 2013Q3

REPORT INFORMATION
  Report Type: Report from Study
  Country: JP (occurrence: JP)
  Receive Date: 20121106
  Receipt Date: 20130709
  Transmission Date: 20140515
  Serious: Yes (Hospitalization)
  Sender: FDA-Public Use
  Company Number: JP-UCBSA-069284

PATIENT
  Age: 63 Year
  Sex: Female
  Weight: 51.8 kg

DRUGS (30)
  1. CIMZIA [Suspect]
     Indication: RHEUMATOID ARTHRITIS
     Route: 058
     Dates: start: 20111219
  2. METHOTREXATE [Suspect]
     Indication: RHEUMATOID ARTHRITIS
     Route: 048
     Dates: start: 20120117
  3. FOLIC ACID [Concomitant]
     Indication: PROPHYLAXIS
     Route: 048
     Dates: start: 20120120
  4. LOXOPROFEN SODIUM HYDRATE [Concomitant]
     Indication: RHEUMATOID ARTHRITIS
     Route: 061
     Dates: start: 20111024
  5. LANSOPRAZOLE [Concomitant]
     Indication: PROPHYLAXIS
     Route: 048
     Dates: start: 20111219
  6. ATORVASTATIN CALCIUM [Concomitant]
     Indication: HYPERLIPIDAEMIA
     Route: 048
     Dates: start: 201010
  7. ASPIRIN [Concomitant]
     Indication: PROPHYLAXIS
     Route: 048
     Dates: start: 20031222
  8. MONOAMMONIUM GLYCYRRHIZINATE GLYCINE DL-METHIONINE COMBINE [Concomitant]
     Indication: HEPATIC FUNCTION ABNORMAL
     Route: 048
     Dates: start: 20120130, end: 20121018
  9. COLIBACILLUS VACCINE [Concomitant]
     Indication: PROPHYLAXIS
     Dosage: QS, PRN
     Route: 061
     Dates: start: 200806
  10. ALPRAZOLAM [Concomitant]
     Indication: DEPRESSION
     Route: 048
     Dates: start: 20120721
  11. ASTOMIN [Concomitant]
     Dosage: DAILY DOSE: 30 MG
     Route: 048
     Dates: start: 20120910, end: 20120913
  12. ASTOMIN [Concomitant]
     Dosage: DAILY DOSE: 30 MG
     Route: 048
     Dates: start: 20121009, end: 201210
  13. ASTOMIN [Concomitant]
     Dosage: DAILY DOSE: 60 MG
     Route: 048
     Dates: start: 201210
  14. MEDICON [Concomitant]
     Dosage: DAILY DOSE: 90 MG
     Route: 048
     Dates: start: 2012, end: 20120910
  15. MEDICON [Concomitant]
     Dosage: DAILY DOSE: 90 MG
     Route: 048
     Dates: start: 20120913, end: 20120925
  16. MUCODYNE [Concomitant]
     Dosage: DAILY DOSE: 750 MG
     Route: 048
     Dates: start: 2012, end: 20120910
  17. MUCODYNE [Concomitant]
     Dosage: DAILY DOSE: 1500 MG
     Route: 048
     Dates: start: 20120913, end: 20120925
  18. MUCOSOLVAN [Concomitant]
     Dosage: DAILY DOSE: 45 MG
     Route: 048
     Dates: start: 20120910, end: 20120925
  19. MUCOSOLVAN [Concomitant]
     Dosage: DAILY DOSE: 45 MG
     Dates: start: 20121009
  20. CLARITH [Concomitant]
     Route: 048
     Dates: start: 20120910, end: 20120913
  21. CLARITH [Concomitant]
     Dosage: DAILY DOSE: 400 MG
     Dates: start: 20121002
  22. ONON [Concomitant]
     Dosage: DAILY DOSE: 450 MG
     Route: 048
     Dates: start: 20120913, end: 20120925
  23. ALVESCO [Concomitant]
     Route: 055
     Dates: start: 20120925
  24. ALLEGRA [Concomitant]
     Dosage: 60 MG
     Dates: start: 20120927
  25. HOKUNALIN [Concomitant]
     Dosage: DAILY DOSE: 2 MG
     Dates: start: 20121002
  26. COUGHCODE-N COMBINATION [Concomitant]
     Dosage: 3 TABLETS DAILY
     Dates: start: 20121009
  27. NEOPHYLLIN [Concomitant]
     Route: 042
     Dates: start: 20121010
  28. FAROM [Concomitant]
     Dosage: DAILY DOSE: 600 MG
     Route: 048
     Dates: start: 20121011
  29. PONTAL [Concomitant]
     Dosage: DAILY DOSE: 750 MG
     Route: 048
     Dates: start: 20121011
  30. MUCOSTA [Concomitant]
     Dosage: DAILY DOSE: 300 MG
     Route: 048
     Dates: start: 20121011

REACTIONS (1)
  - Bronchitis [Recovered/Resolved]
